FAERS Safety Report 4467834-9 (Version None)
Quarter: 2004Q4

REPORT INFORMATION
  Report Type: 
  Country: None (occurrence: None)
  Receive Date: 20041001
  Receipt Date: 20040713
  Transmission Date: 20050328
  Serious: Yes (Other)
  Sender: FDA-Public Use
  Company Number: 2004207324GB

PATIENT
  Age: 80 Year
  Sex: Female
  Weight: 75 kg

DRUGS (6)
  1. XALATAN [Suspect]
     Indication: GLAUCOMA
     Dosage: QD, OPHTHALMIC
     Route: 047
  2. SIMVASTATIN [Concomitant]
  3. CARTEOLOL (CARTEOLOL) [Concomitant]
  4. ARTHROTEC [Concomitant]
  5. ASPIRIN [Concomitant]
  6. KETOPROFEN [Concomitant]

REACTIONS (2)
  - BLOOD PH DECREASED [None]
  - PHOTOPSIA [None]
